FAERS Safety Report 9428335 (Version 1)
Quarter: 2013Q3

REPORT INFORMATION
  Report Type: Spontaneous
  Country: US (occurrence: US)
  Receive Date: 20130730
  Receipt Date: 20130730
  Transmission Date: 20140515
  Serious: Yes (Other)
  Sender: FDA-Public Use
  Company Number: US-BAYER-2013-091600

PATIENT
  Age: 41 Year
  Sex: Female

DRUGS (2)
  1. MIRENA [Suspect]
     Indication: MENORRHAGIA
     Dosage: 20 MCG/24HR, CONT
     Route: 015
     Dates: start: 20130103, end: 20130327
  2. MIRENA [Suspect]
     Indication: CONTRACEPTION

REACTIONS (5)
  - Genital haemorrhage [None]
  - Medical device discomfort [None]
  - Acne [None]
  - Weight increased [None]
  - Feeling abnormal [None]
